FAERS Safety Report 7206622-7 (Version None)
Quarter: 2011Q1

REPORT INFORMATION
  Report Type: 
  Country: None (occurrence: None)
  Receive Date: 20110103
  Receipt Date: 20101223
  Transmission Date: 20110831
  Serious: Yes (Other)
  Sender: FDA-Public Use
  Company Number: US-SANOFI-AVENTIS-2010SA067323

PATIENT
  Age: 83 Year
  Sex: Male
  Weight: 59 kg

DRUGS (4)
  1. METOPROLOL [Concomitant]
  2. MULTAQ [Suspect]
     Indication: VENTRICULAR TACHYCARDIA
     Route: 048
     Dates: start: 20100301, end: 20100901
  3. LISINOPRIL [Suspect]
  4. PRILOSEC [Concomitant]

REACTIONS (3)
  - BLOOD CREATININE INCREASED [None]
  - OFF LABEL USE [None]
  - RENAL FAILURE [None]
